FAERS Safety Report 4363203-0 (Version None)
Quarter: 2004Q2

REPORT INFORMATION
  Report Type: 
  Country: None (occurrence: None)
  Receive Date: 20040517
  Receipt Date: 20040209
  Transmission Date: 20050107
  Serious: No
  Sender: FDA-Public Use
  Company Number: S04-USA-00811-01

PATIENT
  Age: 87 Year
  Sex: Female

DRUGS (7)
  1. NAMENDA [Suspect]
     Indication: DEMENTIA ALZHEIMER'S TYPE
     Dosage: 5 MG QD PO
     Route: 048
     Dates: start: 20040201, end: 20040208
  2. NAMENDA [Suspect]
     Indication: DEMENTIA ALZHEIMER'S TYPE
     Dosage: 10 MG QD PO
     Route: 048
     Dates: start: 20040209
  3. SYNTHROID [Concomitant]
  4. DIGOXIN [Concomitant]
  5. METOPROLOL [Concomitant]
  6. COUMADIN [Concomitant]
  7. CELEBREX [Concomitant]

REACTIONS (3)
  - BLOOD PRESSURE DECREASED [None]
  - DIZZINESS [None]
  - HALLUCINATION [None]
